FAERS Safety Report 7440446-0 (Version None)
Quarter: 2011Q2

REPORT INFORMATION
  Report Type: 
  Country: None (occurrence: None)
  Receive Date: 20110427
  Receipt Date: 20101012
  Transmission Date: 20111010
  Serious: Yes (Other)
  Sender: FDA-Public Use
  Company Number: US-PURDUE-USA-2010-0046690

PATIENT
  Sex: Male

DRUGS (3)
  1. OXYCONTIN [Suspect]
     Dosage: 40 MG, UNK
  2. DILAUDID [Concomitant]
     Indication: BREAKTHROUGH PAIN
     Dosage: 4 MG, PRN
  3. OXYCONTIN [Suspect]
     Indication: PAIN
     Dosage: 80 MG, UNK

REACTIONS (10)
  - THERAPEUTIC RESPONSE DECREASED [None]
  - DYSPEPSIA [None]
  - HALLUCINATION [None]
  - SNEEZING [None]
  - ABDOMINAL DISCOMFORT [None]
  - FEELING OF BODY TEMPERATURE CHANGE [None]
  - DRUG WITHDRAWAL SYNDROME [None]
  - DELUSION [None]
  - ARTHRALGIA [None]
  - NAUSEA [None]
